FAERS Safety Report 4703652-1 (Version None)
Quarter: 2005Q2

REPORT INFORMATION
  Report Type: 
  Country: None (occurrence: None)
  Receive Date: 20050208
  Receipt Date: 20050208
  Transmission Date: 20051028
  Serious: No
  Sender: FDA-Public Use
  Company Number: None

PATIENT
  Sex: Female
  Weight: 117.4816 kg

DRUGS (1)
  1. COUMADIN [Suspect]
     Indication: HYPERCOAGULATION
     Dosage: 2.4 ALT 5MG OR AS DIRECTED

REACTIONS (2)
  - PHARMACEUTICAL PRODUCT COMPLAINT [None]
  - PHLEBOTHROMBOSIS [None]
